FAERS Safety Report 7034715-6 (Version None)
Quarter: 2010Q4

REPORT INFORMATION
  Report Type: 
  Country: None (occurrence: None)
  Receive Date: 20101008
  Receipt Date: 20100928
  Transmission Date: 20110411
  Serious: Yes (Hospitalization, Disabling, Other)
  Sender: FDA-Public Use
  Company Number: BE-CELGENEUS-013-C5013-10060186

PATIENT
  Sex: Female
  Weight: 61.2 kg

DRUGS (9)
  1. CC-5013 [Suspect]
     Indication: MULTIPLE MYELOMA
     Route: 048
     Dates: start: 20100524, end: 20100627
  2. PANTOMED [Concomitant]
     Indication: OESOPHAGITIS
     Route: 048
     Dates: start: 20070101
  3. PAROXETINE [Concomitant]
     Indication: DEPRESSION
     Route: 048
     Dates: start: 20080101
  4. CARDIOASPIRIN [Concomitant]
     Indication: THROMBOSIS PROPHYLAXIS
     Route: 048
  5. SINGULAIR [Concomitant]
     Indication: ASTHMA
     Route: 048
     Dates: start: 20060101
  6. LORAZEPAM [Concomitant]
     Indication: PRODUCT USED FOR UNKNOWN INDICATION
     Route: 048
  7. LYRICA [Concomitant]
     Indication: PRODUCT USED FOR UNKNOWN INDICATION
     Route: 048
     Dates: start: 20080101
  8. ZALDIAR [Concomitant]
     Indication: PRODUCT USED FOR UNKNOWN INDICATION
     Route: 065
  9. TRANSTEC [Concomitant]
     Indication: PRODUCT USED FOR UNKNOWN INDICATION
     Route: 065

REACTIONS (6)
  - ANXIETY [None]
  - COGNITIVE DISORDER [None]
  - CONSTIPATION [None]
  - DEPRESSION [None]
  - INTERSTITIAL LUNG DISEASE [None]
  - PAIN [None]
